FAERS Safety Report 13704277 (Version 1)
Quarter: 2017Q2

REPORT INFORMATION
  Report Type: Report from Study
  Country: US (occurrence: US)
  Receive Date: 20170630
  Receipt Date: 20170630
  Transmission Date: 20170830
  Serious: No
  Sender: FDA-Public Use
  Company Number: PHEH2017US020050

PATIENT
  Sex: Female

DRUGS (3)
  1. ILARIS [Suspect]
     Active Substance: CANAKINUMAB
     Dosage: UNK, QMO (ONCE MONTHLY)
     Route: 065
     Dates: start: 20170626
  2. ILARIS [Suspect]
     Active Substance: CANAKINUMAB
     Indication: PRODUCT USED FOR UNKNOWN INDICATION
     Dosage: UNK
     Route: 065
  3. ILARIS [Suspect]
     Active Substance: CANAKINUMAB
     Dosage: UNK UNK, QMO (ONCE MONTHLY)
     Route: 065
     Dates: start: 20170512

REACTIONS (1)
  - Inappropriate schedule of drug administration [Unknown]
